FAERS Safety Report 5274882-8 (Version None)
Quarter: 2007Q1

REPORT INFORMATION
  Report Type: 
  Country: None (occurrence: None)
  Receive Date: 20061208
  Receipt Date: 20060612
  Transmission Date: 20070707
  Serious: Yes (Hospitalization)
  Sender: FDA-Public Use
  Company Number: 2006UW10416

PATIENT
  Age: 67 Year
  Sex: Female

DRUGS (14)
  1. CRESTOR [Suspect]
     Dosage: 40 MG PO
     Route: 048
  2. CRESTOR [Suspect]
     Dosage: 20 MG PO
     Route: 048
  3. CRESTOR [Suspect]
     Dosage: 10 MG PO
     Route: 048
  4. GEMFIBROZIL [Concomitant]
  5. DIAZEPAM [Concomitant]
  6. PRILOSEC [Concomitant]
  7. MS CONTIN [Concomitant]
  8. MSIR [Concomitant]
  9. MAXZIDE [Concomitant]
  10. EFFEXOR [Concomitant]
  11. METFORMIN HCL [Concomitant]
  12. METOPROLOL SUCCINATE [Concomitant]
  13. ATARAX [Concomitant]
  14. WARFARIN SODIUM [Concomitant]

REACTIONS (2)
  - RENAL FAILURE [None]
  - RHABDOMYOLYSIS [None]
